FAERS Safety Report 14552296 (Version 2)
Quarter: 2018Q1

REPORT INFORMATION
  Report Type: Spontaneous
  Country: US (occurrence: US)
  Receive Date: 20180220
  Receipt Date: 20180223
  Transmission Date: 20180509
  Serious: Yes (Other)
  Sender: FDA-Public Use
  Company Number: PHEH2018US006220

PATIENT
  Age: 48 Year
  Sex: Female
  Weight: 58.51 kg

DRUGS (1)
  1. COSENTYX [Suspect]
     Active Substance: SECUKINUMAB
     Indication: PSORIASIS
     Dosage: 300 MG, QMO
     Route: 058
     Dates: start: 20170714, end: 20171211

REACTIONS (1)
  - Proctitis ulcerative [Unknown]

NARRATIVE: CASE EVENT DATE: 20170714
